FAERS Safety Report 24307012 (Version 1)
Quarter: 2024Q3

REPORT INFORMATION
  Report Type: Spontaneous
  Country: US (occurrence: None)
  Receive Date: 20240910
  Receipt Date: 20240910
  Transmission Date: 20241016
  Serious: Yes (unspecified)
  Sender: Public
  Company Number: None

PATIENT
  Age: 49 Year
  Sex: Male

DRUGS (1)
  1. .DELTA.9-TETRAHYDROCANNABINOL\HERBALS [Suspect]
     Active Substance: .DELTA.9-TETRAHYDROCANNABINOL\HERBALS

REACTIONS (5)
  - Overdose [None]
  - Malaise [None]
  - Alcohol use [None]
  - Vomiting projectile [None]
  - Substance use [None]

NARRATIVE: CASE EVENT DATE: 20240906
